FAERS Safety Report 18101075 (Version 1)
Quarter: 2020Q3

REPORT INFORMATION
  Report Type: Report from Study
  Country: None (occurrence: DE)
  Receive Date: 20200801
  Receipt Date: 20200801
  Transmission Date: 20201103
  Serious: Yes (Other)
  Sender: FDA-Public Use
  Company Number: DE-ABBVIE-20K-062-3504782-00

PATIENT
  Age: 77 Year
  Sex: Female

DRUGS (22)
  1. HUMIRA [Suspect]
     Active Substance: ADALIMUMAB
     Indication: RHEUMATOID ARTHRITIS
     Route: 058
     Dates: start: 200406, end: 200812
  2. MTX [METHOTREXATE] [Concomitant]
     Active Substance: METHOTREXATE SODIUM
  3. MABTHERA [Concomitant]
     Active Substance: RITUXIMAB
     Dates: start: 201112
  4. MABTHERA [Concomitant]
     Active Substance: RITUXIMAB
     Dates: start: 201401, end: 2014
  5. MABTHERA [Concomitant]
     Active Substance: RITUXIMAB
     Dates: start: 201509
  6. MABTHERA [Concomitant]
     Active Substance: RITUXIMAB
     Dates: start: 201911
  7. MTX [METHOTREXATE] [Concomitant]
     Active Substance: METHOTREXATE SODIUM
     Indication: PRODUCT USED FOR UNKNOWN INDICATION
     Dates: start: 1998
  8. MABTHERA [Concomitant]
     Active Substance: RITUXIMAB
     Dates: start: 201503, end: 2015
  9. MABTHERA [Concomitant]
     Active Substance: RITUXIMAB
     Dates: start: 201803, end: 2018
  10. MABTHERA [Concomitant]
     Active Substance: RITUXIMAB
     Dates: start: 201206
  11. MABTHERA [Concomitant]
     Active Substance: RITUXIMAB
     Dates: start: 201105, end: 2011
  12. MTX [METHOTREXATE] [Concomitant]
     Active Substance: METHOTREXATE SODIUM
  13. MABTHERA [Concomitant]
     Active Substance: RITUXIMAB
     Dates: start: 201011
  14. MABTHERA [Concomitant]
     Active Substance: RITUXIMAB
     Dates: start: 201611
  15. MABTHERA [Concomitant]
     Active Substance: RITUXIMAB
     Dates: start: 201301, end: 2013
  16. MABTHERA [Concomitant]
     Active Substance: RITUXIMAB
     Dates: start: 201308
  17. MABTHERA [Concomitant]
     Active Substance: RITUXIMAB
     Indication: PRODUCT USED FOR UNKNOWN INDICATION
     Dates: start: 201005, end: 2010
  18. MABTHERA [Concomitant]
     Active Substance: RITUXIMAB
     Dates: start: 201604, end: 2016
  19. ROACTEMRA [Concomitant]
     Active Substance: TOCILIZUMAB
     Indication: PRODUCT USED FOR UNKNOWN INDICATION
     Dates: start: 200812, end: 201003
  20. MABTHERA [Concomitant]
     Active Substance: RITUXIMAB
     Dates: start: 201409
  21. MABTHERA [Concomitant]
     Active Substance: RITUXIMAB
     Dates: start: 201706
  22. MABTHERA [Concomitant]
     Active Substance: RITUXIMAB
     Dates: start: 201810

REACTIONS (1)
  - Osteoarthritis [Unknown]

NARRATIVE: CASE EVENT DATE: 20190826
